FAERS Safety Report 11833577 (Version 1)
Quarter: 2015Q4

REPORT INFORMATION
  Report Type: Spontaneous
  Country: US (occurrence: US)
  Receive Date: 20151214
  Receipt Date: 20151214
  Transmission Date: 20160305
  Serious: No
  Sender: FDA-Public Use
  Company Number: US-PERRIGO-15US011176

PATIENT
  Age: 71 Year
  Sex: Female
  Weight: 79.82 kg

DRUGS (2)
  1. MINOXIDIL. [Suspect]
     Active Substance: MINOXIDIL
     Indication: ALOPECIA
     Dosage: UNKNOWN, UNKNOWN
     Route: 061
     Dates: start: 2012, end: 2012
  2. MINOXIDIL. [Suspect]
     Active Substance: MINOXIDIL
     Dosage: 2 ML, BID
     Route: 061
     Dates: start: 20151012

REACTIONS (4)
  - Drug administered at inappropriate site [Not Recovered/Not Resolved]
  - Drug ineffective [Unknown]
  - Incorrect dose administered [Not Recovered/Not Resolved]
  - Application site pruritus [Recovered/Resolved]

NARRATIVE: CASE EVENT DATE: 2012
